FAERS Safety Report 5710958-6 (Version None)
Quarter: 2008Q2

REPORT INFORMATION
  Report Type: 
  Country: None (occurrence: None)
  Receive Date: 20080421
  Receipt Date: 20080409
  Transmission Date: 20081010
  Serious: Yes (Other)
  Sender: FDA-Public Use
  Company Number: PHHY2008CA04570

PATIENT
  Sex: Male

DRUGS (2)
  1. DIOVAN HCT [Suspect]
     Indication: HYPERTENSION
     Dosage: 160/25 MG, DAILY
     Route: 048
  2. CALCIUM CHANNEL BLOCKERS [Concomitant]
     Indication: HYPERTENSION

REACTIONS (2)
  - DIABETIC NEPHROPATHY [None]
  - MICROALBUMINURIA [None]
